FAERS Safety Report 11176369 (Version 2)
Quarter: 2015Q3

REPORT INFORMATION
  Report Type: Report from Study
  Country: DE (occurrence: DE)
  Receive Date: 20150610
  Receipt Date: 20150701
  Transmission Date: 20151125
  Serious: Yes (Hospitalization, Other)
  Sender: FDA-Public Use
  Company Number: DE-BRISTOL-MYERS SQUIBB COMPANY-BMS-2015-035871

PATIENT
  Age: 70 Year
  Sex: Female
  Weight: 73 kg

DRUGS (6)
  1. DOXYCYCLIN                         /00055701/ [Concomitant]
     Indication: PRODUCT USED FOR UNKNOWN INDICATION
     Dosage: UNK
     Route: 065
     Dates: start: 20150521
  2. PIPERACILLIN AND TAZOBACTAM [Concomitant]
     Active Substance: PIPERACILLIN SODIUM\TAZOBACTAM SODIUM
     Indication: PRODUCT USED FOR UNKNOWN INDICATION
     Route: 065
  3. APIXABAN [Suspect]
     Active Substance: APIXABAN
     Indication: CEREBROVASCULAR ACCIDENT PROPHYLAXIS
     Route: 065
  4. WARFARIN SODIUM. [Suspect]
     Active Substance: WARFARIN SODIUM
     Indication: ATRIAL FIBRILLATION
     Route: 065
  5. ENOXAPARIN SODIUM. [Suspect]
     Active Substance: ENOXAPARIN SODIUM
     Indication: ATRIAL FIBRILLATION
     Route: 065
  6. PREDNISOLONE. [Concomitant]
     Active Substance: PREDNISOLONE
     Indication: PRODUCT USED FOR UNKNOWN INDICATION
     Dosage: UNK
     Route: 065

REACTIONS (2)
  - Chronic obstructive pulmonary disease [Recovered/Resolved]
  - Pneumonia [Recovered/Resolved]

NARRATIVE: CASE EVENT DATE: 20150521
